FAERS Safety Report 15768523 (Version 3)
Quarter: 2020Q4

REPORT INFORMATION
  Report Type: Report from Study
  Country: US (occurrence: US)
  Receive Date: 20181227
  Receipt Date: 20201030
  Transmission Date: 20210113
  Serious: Yes (Other)
  Sender: FDA-Public Use
  Company Number: US-ALEXION PHARMACEUTICALS INC.-A201816875

PATIENT
  Sex: Female

DRUGS (1)
  1. STRENSIQ [Suspect]
     Active Substance: ASFOTASE ALFA
     Indication: HYPOPHOSPHATASIA
     Dosage: UNK
     Route: 065

REACTIONS (7)
  - Cortisol decreased [Unknown]
  - Pain [Not Recovered/Not Resolved]
  - Depressed mood [Unknown]
  - Fatigue [Not Recovered/Not Resolved]
  - Autoimmune disorder [Unknown]
  - Fall [Unknown]
  - Sinusitis [Not Recovered/Not Resolved]

NARRATIVE: CASE EVENT DATE: 2018
